FAERS Safety Report 12823085 (Version 2)
Quarter: 2016Q4

REPORT INFORMATION
  Report Type: Spontaneous
  Country: GB (occurrence: GB)
  Receive Date: 20161006
  Receipt Date: 20161020
  Transmission Date: 20170207
  Serious: Yes (Other)
  Sender: FDA-Public Use
  Company Number: GB-TEVA-698808ACC

PATIENT
  Age: 74 Year
  Sex: Female

DRUGS (1)
  1. FOLIC ACID 5MG [Suspect]
     Active Substance: FOLIC ACID
     Dates: start: 20160920

REACTIONS (1)
  - Asthma [Not Recovered/Not Resolved]

NARRATIVE: CASE EVENT DATE: 20160920
